FAERS Safety Report 10257900 (Version 1)
Quarter: 2014Q2

REPORT INFORMATION
  Report Type: Report from Study
  Country: US (occurrence: US)
  Receive Date: 20140625
  Receipt Date: 20140625
  Transmission Date: 20141212
  Serious: Yes (Other)
  Sender: FDA-Public Use
  Company Number: US-PFIZER INC-2014170261

PATIENT
  Sex: Female

DRUGS (1)
  1. NICOTROL NASAL SPRAY [Suspect]
     Indication: SMOKING CESSATION THERAPY
     Dosage: UNK
     Route: 045

REACTIONS (5)
  - Suicidal behaviour [Unknown]
  - Depressed mood [Unknown]
  - Nausea [Unknown]
  - Abnormal dreams [Unknown]
  - Sleep disorder [Unknown]
